FAERS Safety Report 9003222 (Version 1)
Quarter: 2013Q1

REPORT INFORMATION
  Report Type: Spontaneous
  Country: US (occurrence: US)
  Receive Date: 20130108
  Receipt Date: 20130108
  Transmission Date: 20140127
  Serious: Yes (Hospitalization, Other)
  Sender: FDA-Public Use
  Company Number: US-009507513-1203USA00032

PATIENT
  Sex: 0

DRUGS (7)
  1. FOSAMAX [Suspect]
     Indication: OSTEOPOROSIS
     Dosage: 70 MG, QW
     Route: 048
     Dates: start: 2005, end: 2007
  2. ACTONEL [Suspect]
     Indication: OSTEOPOROSIS
     Dosage: 35 MG, QW
     Route: 048
     Dates: start: 2007, end: 2008
  3. VITAMINS (UNSPECIFIED) [Concomitant]
     Dosage: UNK
     Dates: start: 2002
  4. CALCIUM (UNSPECIFIED) [Concomitant]
     Dosage: UNK
     Dates: start: 2002
  5. VITAMIN D (UNSPECIFIED) [Concomitant]
     Dosage: UNK
     Dates: start: 2002
  6. PREDNISONE [Concomitant]
     Indication: CHRONIC OBSTRUCTIVE PULMONARY DISEASE
     Dosage: UNK
     Dates: start: 1987, end: 2011
  7. SPIRONOLACTONE [Concomitant]
     Indication: CHRONIC OBSTRUCTIVE PULMONARY DISEASE
     Dosage: UNK
     Dates: start: 1987, end: 2011

REACTIONS (23)
  - Femur fracture [Unknown]
  - Appendicectomy [Unknown]
  - Tracheostomy [Unknown]
  - Respiratory failure [Unknown]
  - Hip arthroplasty [Unknown]
  - Hypoacusis [Unknown]
  - Open reduction of fracture [Unknown]
  - Pneumonia [Unknown]
  - Low turnover osteopathy [Unknown]
  - Oral surgery [Unknown]
  - Osteoarthritis [Unknown]
  - Fall [Unknown]
  - Hypertension [Unknown]
  - Cardiac failure congestive [Unknown]
  - Mitral valve incompetence [Unknown]
  - Pulmonary hypertension [Unknown]
  - Tricuspid valve incompetence [Unknown]
  - Haemoglobin decreased [Unknown]
  - Hallucination [Unknown]
  - Skeletal injury [Unknown]
  - Excoriation [Unknown]
  - Rash [Unknown]
  - Arthralgia [Unknown]
